APPROVED DRUG PRODUCT: ROSUVASTATIN CALCIUM
Active Ingredient: ROSUVASTATIN CALCIUM
Strength: EQ 10MG BASE
Dosage Form/Route: TABLET;ORAL
Application: A079170 | Product #002 | TE Code: AB
Applicant: AUROBINDO PHARMA LTD
Approved: Jul 19, 2016 | RLD: No | RS: No | Type: RX